FAERS Safety Report 19828181 (Version 1)
Quarter: 2021Q3

REPORT INFORMATION
  Report Type: Spontaneous
  Country: DE (occurrence: DE)
  Receive Date: 20210914
  Receipt Date: 20210914
  Transmission Date: 20211014
  Serious: Yes (Death, Hospitalization)
  Sender: FDA-Public Use
  Company Number: DE-TEVA-2021-DE-1951491

PATIENT
  Age: 65 Year
  Sex: Male

DRUGS (11)
  1. PREGABALIN. [Concomitant]
     Active Substance: PREGABALIN
     Dosage: 7.5 DOSAGE FORMS DAILY; 20 MG/ML, 2.5?2.5?2.5?0
  2. EDOXABAN [Concomitant]
     Active Substance: EDOXABAN TOSYLATE
     Dosage: 30 MILLIGRAM DAILY; 30 MG, 1?0?0?0
  3. KALIUMCITRAT [Concomitant]
     Active Substance: POTASSIUM CITRATE
     Dosage: 40 MILLIMOL DAILY; 1?0?1?0
  4. ACETYLSALICYLSAURE [Concomitant]
     Active Substance: ASPIRIN
     Dosage: 100 MILLIGRAM DAILY; 1?0?0?0
  5. METAMIZOL [Concomitant]
     Active Substance: METAMIZOLE SODIUM
     Dosage: 120 GTT DAILY; 1?1?1?1
  6. FENTANYL. [Suspect]
     Active Substance: FENTANYL
     Dosage: REQUIREMENT
     Route: 065
  7. LEVOTHYROXIN?NATRIUM [Concomitant]
     Active Substance: LEVOTHYROXINE SODIUM
     Dosage: 75 MICROGRAM DAILY; 1?0?0?0
  8. MIRTAZAPIN [Concomitant]
     Active Substance: MIRTAZAPINE
     Dosage: 7.5 MILLIGRAM DAILY; 0?0?0?1
  9. MACROGOL/KALIUMCHLORID/NATRIUMCARBONAT/NATRIUMCHLORID [Concomitant]
     Dosage: REQUIREMENT
  10. FENTANYL. [Suspect]
     Active Substance: FENTANYL
     Dosage: 100 MCG, SCHEME
     Route: 065
  11. BISOPROLOL [Concomitant]
     Active Substance: BISOPROLOL
     Dosage: 2.5 MILLIGRAM DAILY; 2.5 MG, 1?0?0?0

REACTIONS (11)
  - Respiratory tract haemorrhage [Unknown]
  - Atrial fibrillation [Unknown]
  - Electrocardiogram abnormal [Unknown]
  - Tachycardia [Unknown]
  - Anaemia [Unknown]
  - Abdominal pain [Unknown]
  - Systemic infection [Unknown]
  - Skin irritation [Unknown]
  - Tracheal pain [Unknown]
  - Condition aggravated [Unknown]
  - Dehydration [Unknown]
